FAERS Safety Report 18055022 (Version 2)
Quarter: 2021Q2

REPORT INFORMATION
  Report Type: Spontaneous
  Country: US (occurrence: US)
  Receive Date: 20200722
  Receipt Date: 20210514
  Transmission Date: 20210717
  Serious: Yes (Other)
  Sender: FDA-Public Use
  Company Number: US-MYLANLABS-2020M1065385

PATIENT
  Age: 66 Year
  Sex: Male
  Weight: 82 kg

DRUGS (38)
  1. CRESTOR [Concomitant]
     Active Substance: ROSUVASTATIN CALCIUM
     Indication: BLOOD CHOLESTEROL INCREASED
     Dosage: 10,20 MG PER DAY
     Dates: start: 20100505, end: 20150520
  2. CIALIS [Concomitant]
     Active Substance: TADALAFIL
     Indication: HYPERTENSION
  3. DOXAZOSIN MESYLATE. [Concomitant]
     Active Substance: DOXAZOSIN MESYLATE
     Indication: PROSTATOMEGALY
     Dosage: 1 MG 2 PER DAY, 5 MG 1 TAB PER DAY
     Dates: start: 20110713, end: 20140210
  4. ALPRAZOLAM. [Concomitant]
     Active Substance: ALPRAZOLAM
     Indication: PANIC DISORDER
  5. TRAMADOL/APAP [Concomitant]
     Active Substance: ACETAMINOPHEN\TRAMADOL
     Indication: PAIN MANAGEMENT
     Dosage: 37.5MG 1 TAB EVERY 6 HOUR, 50 MG 1 TAB PER DAY
     Dates: start: 20170103, end: 20191227
  6. PANTOPRAZOLE [Concomitant]
     Active Substance: PANTOPRAZOLE
     Indication: GASTROOESOPHAGEAL REFLUX DISEASE
     Dosage: 40 MILLIGRAM, QD
     Dates: start: 20180321, end: 20190401
  7. SYMBICORT [Concomitant]
     Active Substance: BUDESONIDE\FORMOTEROL FUMARATE DIHYDRATE
     Indication: CHRONIC OBSTRUCTIVE PULMONARY DISEASE
  8. VENTOLIN [Concomitant]
     Active Substance: ALBUTEROL SULFATE
     Indication: BRONCHOSPASM
     Dosage: 2 PUFFS BID
     Dates: start: 20180507, end: 20180818
  9. VALSARTAN AND HYDROCHLOROTHIAZIDE TABLETS, USP [Suspect]
     Active Substance: HYDROCHLOROTHIAZIDE\VALSARTAN
     Indication: HYPERTENSION
     Dosage: 320?25MG
     Dates: start: 20130808, end: 20170326
  10. VALSARTAN AND HYDROCHLOROTHIAZIDE [Suspect]
     Active Substance: HYDROCHLOROTHIAZIDE\VALSARTAN
     Indication: HYPERTENSION
     Dosage: 320?25MG
     Dates: start: 20180321, end: 20180624
  11. CIALIS [Concomitant]
     Active Substance: TADALAFIL
     Indication: PROSTATOMEGALY
     Dosage: 10MG 1 PER DAY, 5 MG 1 PER DAY
     Dates: start: 20110713, end: 20140210
  12. FLUTICASONE PROPIONATE. [Concomitant]
     Active Substance: FLUTICASONE PROPIONATE
     Indication: ASTHMA
     Dosage: 50 MICROGRAM
     Dates: start: 20140116, end: 20140901
  13. ATORVASTATIN [Concomitant]
     Active Substance: ATORVASTATIN
     Indication: BLOOD CHOLESTEROL INCREASED
     Dosage: 40 MILLIGRAM, QD
     Dates: start: 20160209, end: 20170326
  14. SENEXON?S [Concomitant]
     Active Substance: DOCUSATE SODIUM\SENNOSIDES A AND B
     Indication: CONSTIPATION
     Dosage: 8.6?50MG
     Dates: start: 20181127, end: 20190221
  15. HYDROCHLOROTHIAZIDE. [Concomitant]
     Active Substance: HYDROCHLOROTHIAZIDE
     Indication: HYPERTENSION
     Dosage: 12.5 MILLIGRAM, QD
     Dates: start: 20190103, end: 20200113
  16. LINZESS [Concomitant]
     Active Substance: LINACLOTIDE
     Indication: IRRITABLE BOWEL SYNDROME
     Dosage: 145 MICROGRAM, QD
     Dates: start: 20170411, end: 20190923
  17. TAMSULOSIN [Concomitant]
     Active Substance: TAMSULOSIN
     Indication: PROSTATOMEGALY
     Dosage: 0.4 MILLIGRAM, QD
     Dates: start: 20171002, end: 20180522
  18. SYMBICORT [Concomitant]
     Active Substance: BUDESONIDE\FORMOTEROL FUMARATE DIHYDRATE
     Indication: ASTHMA
     Dosage: 80/4.5 MG, 2 PUFFS 2 TIMES A DAY
     Dates: start: 20180521, end: 20190920
  19. HYDRALAZINE [Concomitant]
     Active Substance: HYDRALAZINE HYDROCHLORIDE
     Indication: HYPERTENSION
     Dosage: 25 MILLIGRAM, BID
     Dates: start: 20130220, end: 20131124
  20. AMLODIPINE BESYLATE. [Concomitant]
     Active Substance: AMLODIPINE BESYLATE
     Dosage: 12.5 MILLIGRAM, QD
     Dates: start: 20190110, end: 20200113
  21. METFORMIN HCL [Concomitant]
     Active Substance: METFORMIN HYDROCHLORIDE
     Indication: TYPE 2 DIABETES MELLITUS
     Dosage: 850 MILLIGRAM, QD
     Dates: start: 20160209, end: 20170326
  22. CARVEDILOL. [Concomitant]
     Active Substance: CARVEDILOL
     Indication: HYPERTENSION
     Dosage: 6.25MG, 2 TAB PER DAY, 25 MG, 2 TAB PER DAY
     Dates: start: 20160912, end: 20170325
  23. POTASSIUM CLAVULANATE [Concomitant]
     Active Substance: CLAVULANATE POTASSIUM
     Indication: BLOOD POTASSIUM DECREASED
     Dosage: 20 MILLIEQUIVALENT PER LITRE, QD
     Dates: start: 20181004, end: 20190924
  24. OMEPRAZOLE. [Concomitant]
     Active Substance: OMEPRAZOLE
     Indication: DYSPEPSIA
     Dosage: 40 MILLIGRAM, QD
     Dates: start: 20140110, end: 20170203
  25. TAMSULOSIN HCL [Concomitant]
     Active Substance: TAMSULOSIN HYDROCHLORIDE
     Indication: PROSTATOMEGALY
     Dosage: 0.4 MILLIGRAM, QD
     Dates: start: 20100812, end: 20161010
  26. CARVEDILOL. [Concomitant]
     Active Substance: CARVEDILOL
     Dosage: 6.25 MG, 1 TAB PER DAY, 25MG 2 TAB PER DAY
     Dates: start: 20120411, end: 20180312
  27. CEFUROXIME AXETIL. [Concomitant]
     Active Substance: CEFUROXIME AXETIL
     Dosage: 50 MILLIGRAM
     Dates: start: 20161109, end: 20170220
  28. LINZESS [Concomitant]
     Active Substance: LINACLOTIDE
     Indication: CONSTIPATION
  29. METFORMIN [Concomitant]
     Active Substance: METFORMIN HYDROCHLORIDE
     Indication: TYPE 2 DIABETES MELLITUS
     Dosage: 850 MILLIGRAM, QD
     Dates: start: 20160630, end: 20171002
  30. OLMESARTAN MEDOXOMIL. [Concomitant]
     Active Substance: OLMESARTAN MEDOXOMIL
     Indication: HYPERTENSION
     Dosage: 40 MILLIGRAM, QD
     Dates: start: 20180717, end: 20190312
  31. DIOVAN HCT [Concomitant]
     Active Substance: HYDROCHLOROTHIAZIDE\VALSARTAN
     Indication: HYPERTENSION
     Dosage: 160?25MG, 320?12.5MG, 320?25MG PER DAY
     Dates: start: 20120407, end: 20130814
  32. ATORVASTATIN [Concomitant]
     Active Substance: ATORVASTATIN
     Dosage: 50 MG 1 TAB PER DAY, 80 MG 1 TAB PER DAY
     Dates: start: 20160812, end: 20190505
  33. ALPRAZOLAM. [Concomitant]
     Active Substance: ALPRAZOLAM
     Indication: ANXIETY
     Dosage: 0.5 MILLIGRAM, BID
     Dates: start: 20180906, end: 20181127
  34. ASPIRIN                            /00002701/ [Concomitant]
     Active Substance: ASPIRIN
     Dosage: 81MG, 1 OR 2 TAB PER DAY
     Dates: start: 20160630, end: 20180818
  35. MONTELUKAST [Concomitant]
     Active Substance: MONTELUKAST SODIUM
     Indication: HYPERSENSITIVITY
     Dosage: 10 MILLIGRAM, QD
     Dates: start: 20180507, end: 20190512
  36. GABAPENTIN. [Concomitant]
     Active Substance: GABAPENTIN
     Indication: NEUROPATHY PERIPHERAL
     Dosage: 400MG THREE TIMES A DAY, 600MG 2 TIMES A DAY
     Dates: start: 20190610, end: 20200120
  37. FLUTICASONE PROPIONATE. [Concomitant]
     Active Substance: FLUTICASONE PROPIONATE
     Indication: CHRONIC OBSTRUCTIVE PULMONARY DISEASE
  38. AMLODIPINE BESYLATE. [Concomitant]
     Active Substance: AMLODIPINE BESYLATE
     Indication: HYPERTENSION
     Dosage: 5 MILLIGRAM, QD
     Dates: start: 20140116, end: 20160828

REACTIONS (3)
  - Colorectal cancer [Unknown]
  - Prostate cancer [Unknown]
  - Gastric cancer [Unknown]

NARRATIVE: CASE EVENT DATE: 20171101
